FAERS Safety Report 24238079 (Version 1)
Quarter: 2024Q3

REPORT INFORMATION
  Report Type: Spontaneous
  Country: US (occurrence: US)
  Receive Date: 20240822
  Receipt Date: 20240822
  Transmission Date: 20241017
  Serious: Yes (Hospitalization, Other)
  Sender: SANOFI AVENTIS
  Company Number: US-SA-SAC20240821001137

PATIENT
  Age: 62 Year
  Sex: Male

DRUGS (2)
  1. DUPIXENT [Suspect]
     Active Substance: DUPILUMAB
     Indication: Onychomycosis
     Dosage: 300 MG, QOW
     Route: 058
     Dates: start: 20240620, end: 20240719
  2. DUPIXENT [Suspect]
     Active Substance: DUPILUMAB
     Indication: Fungal foot infection

REACTIONS (6)
  - Coronary artery occlusion [Recovering/Resolving]
  - Chest pain [Recovering/Resolving]
  - Heart rate decreased [Recovering/Resolving]
  - Rash [Unknown]
  - Product prescribing issue [Unknown]
  - Product use in unapproved indication [Unknown]

NARRATIVE: CASE EVENT DATE: 20240101
